FAERS Safety Report 25949074 (Version 3)
Quarter: 2025Q4

REPORT INFORMATION
  Report Type: Report from Study
  Country: US (occurrence: None)
  Receive Date: 20251022
  Receipt Date: 20251225
  Transmission Date: 20260117
  Serious: Yes (Other)
  Sender: UCB
  Company Number: US-UCBSA-2025066247

PATIENT
  Age: 12 Year
  Weight: 43.2 kg

DRUGS (5)
  1. FENFLURAMINE [Suspect]
     Active Substance: FENFLURAMINE
     Indication: Severe myoclonic epilepsy of infancy
     Dosage: 4 MILLILITER, 2X/DAY (BID)
     Route: 061
  2. DEPAKOTE [Concomitant]
     Active Substance: DIVALPROEX SODIUM
     Indication: Product used for unknown indication
     Dosage: UNK
  3. EPIDIOLEX [Concomitant]
     Active Substance: CANNABIDIOL
     Indication: Product used for unknown indication
     Dosage: 4 MILLILITER, 2X/DAY (BID)
     Route: 061
  4. LACOSAMIDE [Concomitant]
     Active Substance: LACOSAMIDE
     Indication: Product used for unknown indication
     Dosage: UNK
  5. VALPROIC ACID [Concomitant]
     Active Substance: VALPROIC ACID
     Indication: Product used for unknown indication
     Dosage: UNK, 2X/DAY (BID)
     Route: 061

REACTIONS (8)
  - Seizure [Recovered/Resolved]
  - Eating disorder [Recovered/Resolved]
  - Somnolence [Recovered/Resolved]
  - Upper respiratory tract infection [Unknown]
  - Hyperphagia [Unknown]
  - Anxiety [Unknown]
  - Left ventricular dilatation [Not Recovered/Not Resolved]
  - Patient uncooperative [Unknown]
